FAERS Safety Report 8147563-0 (Version None)
Quarter: 2012Q1

REPORT INFORMATION
  Report Type: 
  Country: None (occurrence: None)
  Receive Date: 20120218
  Receipt Date: 20110304
  Transmission Date: 20120608
  Serious: Yes (Life-Threatening, Hospitalization, Other)
  Sender: FDA-Public Use
  Company Number: US-ALLERGAN-1102676US

PATIENT
  Age: 67 Year
  Sex: Female

DRUGS (3)
  1. RELPAX [Concomitant]
     Indication: PRODUCT USED FOR UNKNOWN INDICATION
     Dosage: 40 MG, QD PRN
  2. BOTULINUM TOXIN TYPE A [Suspect]
     Indication: TORTICOLLIS
     Dosage: 100 UNITS, SINGLE
     Route: 030
     Dates: start: 20101103, end: 20101103
  3. HORMONE REPLACMENT THERAPY UNSPECIFIED [Concomitant]
     Indication: HORMONE REPLACEMENT THERAPY

REACTIONS (2)
  - FATIGUE [None]
  - MYOCARDIAL INFARCTION [None]
